FAERS Safety Report 16994790 (Version 4)
Quarter: 2020Q1

REPORT INFORMATION
  Report Type: Spontaneous
  Country: DE (occurrence: DE)
  Receive Date: 20191105
  Receipt Date: 20200304
  Transmission Date: 20200409
  Serious: Yes (Other)
  Sender: FDA-Public Use
  Company Number: DE-MYLANLABS-2019M1104208

PATIENT
  Sex: Female

DRUGS (33)
  1. VALSARTAN HEUMANN [Suspect]
     Active Substance: VALSARTAN
     Indication: PRODUCT USED FOR UNKNOWN INDICATION
     Dosage: UNK
     Dates: start: 20161109
  2. VALSARTAN STADA [Suspect]
     Active Substance: VALSARTAN
     Indication: PRODUCT USED FOR UNKNOWN INDICATION
     Dosage: UNK
     Dates: start: 20160926, end: 201611
  3. VALSACOR [Suspect]
     Active Substance: VALSARTAN
     Indication: PRODUCT USED FOR UNKNOWN INDICATION
     Dosage: UNK
     Dates: start: 20141014, end: 201609
  4. VALSARTAN. [Suspect]
     Active Substance: VALSARTAN
     Indication: PRODUCT USED FOR UNKNOWN INDICATION
     Dosage: UNK
     Dates: start: 20130802, end: 201404
  5. OMEPRAZOL                          /00661201/ [Concomitant]
     Active Substance: OMEPRAZOLE
     Dosage: UNK
  6. VALSARTAN HEXAL [Suspect]
     Active Substance: VALSARTAN
     Dosage: 0-0-1
     Dates: start: 2018
  7. ANGELIQ [Concomitant]
     Active Substance: DROSPIRENONE\ESTRADIOL
     Dosage: UNK
  8. VALSARTAN. [Suspect]
     Active Substance: VALSARTAN
     Dosage: UNK
     Dates: start: 20120109, end: 201208
  9. DIOVAN [Suspect]
     Active Substance: VALSARTAN
     Dosage: UNK
     Dates: end: 201201
  10. EUTHYROX [Concomitant]
     Active Substance: LEVOTHYROXINE SODIUM
     Dosage: UNK (1-0-0)
     Dates: start: 2018
  11. IBUFLAM                            /00109201/ [Concomitant]
     Active Substance: IBUPROFEN
     Dosage: UNK
  12. TORASEMID [Concomitant]
     Active Substance: TORSEMIDE
  13. VALSARTAN DURA 80 MG FILMTABLETTEN [Suspect]
     Active Substance: VALSARTAN
     Indication: PRODUCT USED FOR UNKNOWN INDICATION
     Dosage: UNK
     Dates: start: 20140714, end: 201410
  14. VALSARTAN DURA 80 MG FILMTABLETTEN [Suspect]
     Active Substance: VALSARTAN
     Dosage: UNK
     Dates: start: 20130802, end: 201404
  15. VALSARTAN 1A PHARMA [Suspect]
     Active Substance: VALSARTAN
     Indication: PRODUCT USED FOR UNKNOWN INDICATION
     Dosage: 1-0-0
     Dates: start: 2018
  16. VALSARTAN HEXAL [Suspect]
     Active Substance: VALSARTAN
     Indication: PRODUCT USED FOR UNKNOWN INDICATION
     Dosage: 0-0-1
     Dates: start: 20130409, end: 201306
  17. DIOVAN [Suspect]
     Active Substance: VALSARTAN
     Indication: PRODUCT USED FOR UNKNOWN INDICATION
     Dosage: UNK
     Dates: start: 20121004, end: 201211
  18. VALORON N                          /00628301/ [Concomitant]
     Active Substance: NALOXONE HYDROCHLORIDE\TILIDINE HYDROCHLORIDE
     Dosage: UNK
  19. ALPICORT [Concomitant]
     Dosage: UNK
  20. VALSARTAN. [Suspect]
     Active Substance: VALSARTAN
     Indication: PRODUCT USED FOR UNKNOWN INDICATION
     Dosage: 160 MILLIGRAM, AM
     Dates: start: 2012, end: 2018
  21. VAGIMID [Concomitant]
     Active Substance: ALLANTOIN\AMINACRINE HYDROCHLORIDE\SULFANILAMIDE
     Dosage: UNK
  22. MOXONIDIN [Concomitant]
     Active Substance: MOXONIDINE
     Dosage: UNK(0-0-1)
     Dates: start: 2018
  23. PANTOPRAZOL                        /01263201/ [Concomitant]
     Active Substance: PANTOPRAZOLE
     Dosage: UNK
  24. PREDNISOLON                        /00016201/ [Concomitant]
     Active Substance: PREDNISOLONE
     Dosage: UNK
  25. DICLOFENAC RATIO [Concomitant]
     Dosage: 75 MILLIGRAM
  26. VALSARTAN 1A PHARMA [Suspect]
     Active Substance: VALSARTAN
     Dosage: UNK
     Dates: start: 20140606, end: 201407
  27. VALSARTAN ZENTIVA [Suspect]
     Active Substance: VALSARTAN
     Indication: PRODUCT USED FOR UNKNOWN INDICATION
     Dosage: UNK
     Dates: start: 20120109, end: 201208
  28. IBUFLAM                            /00109201/ [Concomitant]
     Active Substance: IBUPROFEN
     Dosage: UNK
  29. PARACODIN N                        /00063002/ [Concomitant]
     Dosage: UNK
  30. ASPIRIN. [Concomitant]
     Active Substance: ASPIRIN
     Dosage: UNK, 1-0-0
     Dates: start: 2018
  31. VALSARTAN DURA 80 MG FILMTABLETTEN [Suspect]
     Active Substance: VALSARTAN
     Dosage: UNK
     Dates: start: 20121105, end: 201303
  32. METOPROLOL SUCCINATE. [Concomitant]
     Active Substance: METOPROLOL SUCCINATE
     Dosage: UNK (1-0-1)
     Dates: start: 2018
  33. MOXOBETA [Concomitant]
     Active Substance: MOXONIDINE
     Dosage: UNK

REACTIONS (4)
  - Impaired quality of life [Not Recovered/Not Resolved]
  - Exposure to toxic agent [Unknown]
  - Mental impairment [Not Recovered/Not Resolved]
  - Disease susceptibility [Unknown]
